FAERS Safety Report 8919579 (Version 2)
Quarter: 2013Q2

REPORT INFORMATION
  Report Type: Report from Study
  Country: JP (occurrence: JP)
  Receive Date: 20121121
  Receipt Date: 20130603
  Transmission Date: 20140414
  Serious: Yes (Hospitalization, Other)
  Sender: FDA-Public Use
  Company Number: JP-009507513-2012SP014991

PATIENT
  Age: 66 Year
  Sex: Female
  Weight: 64 kg

DRUGS (26)
  1. PEGINTRON [Suspect]
     Indication: CHRONIC HEPATITIS C
     Dosage: 1.246 MICROGRAM PER KILOGRAM, QW
     Route: 058
     Dates: start: 20120124, end: 20120302
  2. PEGINTRON [Suspect]
     Dosage: 1 MICROGRAM PER KILOGRAM, QW
     Route: 058
     Dates: start: 20120312, end: 20120408
  3. PEGINTRON [Suspect]
     Dosage: 0.67 MICROGRAM PER KILOGRAM, QW
     Route: 058
     Dates: start: 20120409, end: 20120415
  4. PEGINTRON [Suspect]
     Dosage: 0.78 MICROGRAM PER KILOGRAM, QW
     Route: 058
     Dates: start: 20120416, end: 20120624
  5. PEGINTRON [Suspect]
     Dosage: 0.973 MICROGRAM PER KILOGRAM, QW
     Route: 058
     Dates: start: 20120625
  6. REBETOL [Suspect]
     Indication: CHRONIC HEPATITIS C
     Dosage: 600 MG, QD
     Route: 048
     Dates: start: 20120124, end: 20120219
  7. REBETOL [Suspect]
     Dosage: 400 MG, QD
     Route: 048
     Dates: start: 20120220, end: 20120226
  8. REBETOL [Suspect]
     Dosage: 200 MG, QD
     Route: 048
     Dates: start: 20120227, end: 20120301
  9. REBETOL [Suspect]
     Dosage: 200 MG, QD
     Route: 048
     Dates: start: 20120312, end: 20120501
  10. REBETOL [Suspect]
     Dosage: 400 MG, QD
     Route: 048
     Dates: start: 20120502, end: 20120617
  11. REBETOL [Suspect]
     Dosage: 600 MG, QD
     Route: 048
     Dates: start: 20120618
  12. TELAVIC [Suspect]
     Indication: CHRONIC HEPATITIS C
     Dosage: 2250 MG, QD
     Route: 048
     Dates: start: 20120124, end: 20120212
  13. TELAVIC [Suspect]
     Dosage: 1500 MG, QD
     Route: 048
     Dates: start: 20120213, end: 20120214
  14. TELAVIC [Suspect]
     Dosage: 1000 MG, QD
     Route: 048
     Dates: start: 20120215, end: 20120219
  15. TELAVIC [Suspect]
     Dosage: 750 MG, QD
     Route: 048
     Dates: start: 20120220, end: 20120301
  16. TELAVIC [Suspect]
     Dosage: 250 MG, QD
     Route: 048
     Dates: start: 20120312
  17. URSO [Concomitant]
     Indication: CHRONIC HEPATITIS C
     Dosage: 600 MG, QD
     Route: 048
  18. VOLTAREN [Concomitant]
     Indication: PYREXIA
     Dosage: 50 MG, PRN
     Route: 054
     Dates: start: 20120124
  19. VOLTAREN [Concomitant]
     Indication: PROPHYLAXIS
  20. VOLTAREN [Concomitant]
     Indication: PYREXIA
     Dosage: 37.5 MG, PRN
     Route: 048
     Dates: start: 20120125
  21. VOLTAREN [Concomitant]
     Indication: PROPHYLAXIS
  22. SELBEX [Concomitant]
     Indication: PROPHYLAXIS
     Dosage: 0.5 G, PRN
     Route: 048
  23. SELBEX [Concomitant]
     Indication: ABDOMINAL DISCOMFORT
  24. TOUGHMAC E [Concomitant]
     Indication: PROPHYLAXIS
     Dosage: 3 DF, QD
     Route: 048
     Dates: start: 20120126
  25. TOUGHMAC E [Concomitant]
     Indication: ABDOMINAL DISCOMFORT
  26. FUNGIZONE [Concomitant]
     Indication: OESOPHAGEAL CANDIDIASIS
     Dosage: 24 ML, QD
     Route: 048
     Dates: start: 20120214, end: 20120222

REACTIONS (3)
  - Anaemia [Not Recovered/Not Resolved]
  - Decreased appetite [Not Recovered/Not Resolved]
  - Anaemia [Recovering/Resolving]
